FAERS Safety Report 24766727 (Version 1)
Quarter: 2024Q4

REPORT INFORMATION
  Report Type: Spontaneous
  Country: CN (occurrence: CN)
  Receive Date: 20241223
  Receipt Date: 20241223
  Transmission Date: 20250114
  Serious: Yes (Life-Threatening, Hospitalization)
  Sender: BAYER HEALTHCARE PHARMACEUTICALS INC.
  Company Number: CN-BAYER-2024A180982

PATIENT
  Age: 65 Year
  Sex: Male

DRUGS (2)
  1. ULTRAVIST [Suspect]
     Active Substance: IOPROMIDE
     Indication: Arteriosclerosis coronary artery
     Dosage: UNK
     Dates: start: 20241121, end: 20241121
  2. ULTRAVIST [Suspect]
     Active Substance: IOPROMIDE
     Indication: Computerised tomogram heart

REACTIONS (11)
  - Anaphylactic shock [Recovering/Resolving]
  - Platelet count decreased [None]
  - Chest discomfort [None]
  - Dizziness [None]
  - Muscle tightness [None]
  - Skin tightness [None]
  - Asthenia [None]
  - Pruritus [None]
  - Blood pressure decreased [Recovering/Resolving]
  - Chills [None]
  - Depressed mood [None]

NARRATIVE: CASE EVENT DATE: 20241121
